FAERS Safety Report 14607153 (Version 1)
Quarter: 2018Q1

REPORT INFORMATION
  Report Type: Spontaneous
  Country: US (occurrence: US)
  Receive Date: 20180306
  Receipt Date: 20180306
  Transmission Date: 20180509
  Serious: No
  Sender: FDA-Public Use
  Company Number: None

PATIENT
  Age: 45 Year
  Sex: Male
  Weight: 91.63 kg

DRUGS (9)
  1. RIISPERIDONE [Suspect]
     Active Substance: RISPERIDONE
     Indication: SCHIZOPHRENIA
  2. COLACE [Concomitant]
     Active Substance: DOCUSATE SODIUM
  3. SYRINGE [Concomitant]
     Active Substance: DEVICE
  4. HYDROCLOROTHIAZIDE [Concomitant]
     Active Substance: HYDROCHLOROTHIAZIDE
  5. MULTI VITAMIN [Concomitant]
     Active Substance: VITAMINS
  6. MIRALAX [Concomitant]
     Active Substance: POLYETHYLENE GLYCOL 3350
  7. RISPERDAL CONSTA [Suspect]
     Active Substance: RISPERIDONE
  8. NIFEDIPINE. [Concomitant]
     Active Substance: NIFEDIPINE
  9. VITAMIN D [Concomitant]
     Active Substance: CHOLECALCIFEROL

REACTIONS (7)
  - Testicular haemorrhage [None]
  - Blood glucose increased [None]
  - Penile haemorrhage [None]
  - Weight increased [None]
  - Bowel movement irregularity [None]
  - Erectile dysfunction [None]
  - Ejaculation failure [None]

NARRATIVE: CASE EVENT DATE: 20180219
